FAERS Safety Report 8973888 (Version 1)
Quarter: 2012Q4

REPORT INFORMATION
  Report Type: 
  Country: CA (occurrence: CA)
  Receive Date: 20121218
  Receipt Date: 20121218
  Transmission Date: 20130627
  Serious: Yes (Hospitalization)
  Sender: FDA-Public Use
  Company Number: CA-GLAXOSMITHKLINE-A1005262A

PATIENT
  Age: 50 Year
  Sex: Female
  Weight: 50 kg

DRUGS (1)
  1. ADVAIR [Suspect]
     Indication: ASTHMA
     Dosage: 1PUFF As required
     Route: 055
     Dates: start: 2007

REACTIONS (2)
  - Dyspnoea [Recovering/Resolving]
  - Immobile [Recovering/Resolving]
